FAERS Safety Report 5904606-X (Version None)
Quarter: 2008Q4

REPORT INFORMATION
  Report Type: 
  Country: None (occurrence: None)
  Receive Date: 20081001
  Receipt Date: 20080925
  Transmission Date: 20090506
  Serious: Yes (Other)
  Sender: FDA-Public Use
  Company Number: JP-ASTRAZENECA-2008AP07581

PATIENT
  Age: 47 Year
  Sex: Male
  Weight: 47 kg

DRUGS (1)
  1. DIPRIVAN [Suspect]
     Indication: SEDATION
     Dosage: ADMINISTERED AT 17 ML/HR.
     Route: 041

REACTIONS (1)
  - DELAYED RECOVERY FROM ANAESTHESIA [None]
